FAERS Safety Report 9306154 (Version 2)
Quarter: 2014Q2

REPORT INFORMATION
  Report Type: Spontaneous
  Country: FR (occurrence: FR)
  Receive Date: 20130523
  Receipt Date: 20140623
  Transmission Date: 20141212
  Serious: Yes (Hospitalization, Disabling, Other)
  Sender: FDA-Public Use
  Company Number: FR-ROCHE-1227648

PATIENT
  Age: 49 Year
  Sex: Male
  Weight: 178 kg

DRUGS (12)
  1. PEGASYS [Suspect]
     Indication: HEPATITIS C
     Dosage: 25.7143 MCG
     Route: 058
     Dates: start: 201107, end: 20130408
  2. COPEGUS [Suspect]
     Indication: HEPATITIS C
     Dosage: 85.7143 MG
     Route: 048
     Dates: start: 201107, end: 20130408
  3. VICTRELIS [Suspect]
     Indication: HEPATITIS C
     Route: 065
     Dates: start: 20120701, end: 20130408
  4. EPREX [Suspect]
     Indication: ANAEMIA
     Route: 058
  5. AMLOR [Concomitant]
  6. SELECTOL [Concomitant]
  7. CORTANCYL [Concomitant]
  8. LASIX [Concomitant]
  9. MICARDIS [Concomitant]
  10. RENAGEL [Concomitant]
  11. TAHOR [Concomitant]
  12. FERINJECT [Concomitant]

REACTIONS (3)
  - Sudden hearing loss [Recovered/Resolved with Sequelae]
  - Ear pain [Recovered/Resolved]
  - Tinnitus [Not Recovered/Not Resolved]
